FAERS Safety Report 6999685-5 (Version None)
Quarter: 2010Q3

REPORT INFORMATION
  Report Type: 
  Country: None (occurrence: None)
  Receive Date: 20100920
  Receipt Date: 20100616
  Transmission Date: 20110219
  Serious: No
  Sender: FDA-Public Use
  Company Number: US-ASTRAZENECA-2010SE29150

PATIENT
  Age: 21674 Day
  Sex: Female

DRUGS (4)
  1. SEROQUEL [Suspect]
     Dosage: 300 MG 2 QHS
     Route: 048
     Dates: start: 20040908
  2. CELEXA [Concomitant]
     Dosage: 40 MG 1.5 DAILY
     Route: 048
  3. XANAX [Concomitant]
     Route: 048
     Dates: start: 20040101
  4. WELLBUTRIN SR [Concomitant]
     Route: 048
     Dates: start: 20040908

REACTIONS (8)
  - BULIMIA NERVOSA [None]
  - CHRONIC OBSTRUCTIVE PULMONARY DISEASE [None]
  - DIABETES MELLITUS [None]
  - HIATUS HERNIA [None]
  - MAJOR DEPRESSION [None]
  - OBESITY [None]
  - OBSESSIVE-COMPULSIVE DISORDER [None]
  - SLEEP APNOEA SYNDROME [None]
